FAERS Safety Report 6165720-X (Version None)
Quarter: 2009Q2

REPORT INFORMATION
  Report Type: 
  Country: None (occurrence: None)
  Receive Date: 20090423
  Receipt Date: 20090415
  Transmission Date: 20091009
  Serious: Yes (Death)
  Sender: FDA-Public Use
  Company Number: US-ABBOTT-09P-163-0568435-00

PATIENT
  Age: 57 Year
  Sex: Female

DRUGS (6)
  1. LEVOTHYROXINE SODIUM [Suspect]
     Indication: HYPOTHYROIDISM
  2. LEVOTHYROXINE SODIUM [Suspect]
  3. LEVOTHYROXINE SODIUM [Suspect]
  4. ACETAMINOPHEN [Suspect]
     Indication: HEADACHE
     Dosage: 2 G/WK ON AVERAGE, PLUS 500 MG PER NIGHT
  5. ACETAMINOPHEN [Suspect]
     Indication: INSOMNIA
  6. SUNITINIB [Interacting]
     Indication: GASTROINTESTINAL STROMAL TUMOUR
     Dosage: 4 WEEKS ON 2 WEEKS OFF

REACTIONS (8)
  - ANALGESIC DRUG LEVEL BELOW THERAPEUTIC [None]
  - DRUG INTERACTION [None]
  - HEPATIC FAILURE [None]
  - HEPATOTOXICITY [None]
  - HYPOTHYROIDISM [None]
  - INSOMNIA [None]
  - METABOLIC ACIDOSIS [None]
  - RENAL FAILURE [None]
